FAERS Safety Report 9296932 (Version 5)
Quarter: 2025Q2

REPORT INFORMATION
  Report Type: Spontaneous
  Country: US (occurrence: US)
  Receive Date: 20130518
  Receipt Date: 20250501
  Transmission Date: 20250716
  Serious: Yes (Hospitalization, Other)
  Sender: ROCHE
  Company Number: US-ROCHE-1225009

PATIENT
  Age: 71 Year
  Sex: Female

DRUGS (3)
  1. BONIVA [Suspect]
     Active Substance: IBANDRONATE SODIUM
     Indication: Osteoporosis
     Route: 048
     Dates: start: 2003, end: 2011
  2. BONIVA [Suspect]
     Active Substance: IBANDRONATE SODIUM
     Indication: Osteopenia
  3. FOSAMAX [Suspect]
     Active Substance: ALENDRONATE SODIUM
     Indication: Osteoporosis
     Route: 065
     Dates: start: 2000, end: 2011

REACTIONS (7)
  - Femur fracture [Unknown]
  - Emotional distress [Unknown]
  - Fall [Unknown]
  - Foot fracture [Unknown]
  - Wrist fracture [Recovered/Resolved]
  - Scoliosis [Unknown]
  - Micturition urgency [Unknown]

NARRATIVE: CASE EVENT DATE: 20110524
